FAERS Safety Report 8459100-1 (Version None)
Quarter: 2012Q2

REPORT INFORMATION
  Report Type: 
  Country: None (occurrence: None)
  Receive Date: 20120622
  Receipt Date: 20120622
  Transmission Date: 20120825
  Serious: Yes (Hospitalization, Other)
  Sender: FDA-Public Use
  Company Number: US-PFIZER INC-2011US-46817

PATIENT
  Age: 47 Year
  Sex: Female

DRUGS (10)
  1. ISOSORBIDE MONONITRATE [Concomitant]
  2. VERAPAMIL [Suspect]
     Dosage: 60 MG FOR EVERY 6 HOURS
     Route: 065
  3. GLYCERYL TRINITRATE [Concomitant]
  4. HYDROCHLOROTHIAZIDE [Concomitant]
  5. VERAPAMIL HCL [Suspect]
     Indication: HYPERTENSION
     Dosage: ONCE DAILY
     Route: 065
  6. LISINOPRIL DIHYDRATE [Concomitant]
  7. LABETALOL [Concomitant]
     Dosage: 200 MG, UNK
  8. LORAZEPAM [Concomitant]
  9. ZOLPIDEM TARTRATE [Concomitant]
  10. FLUOXETINE HYDROCHLORIDE [Concomitant]

REACTIONS (2)
  - ARTERIOSPASM CORONARY [None]
  - ACUTE MYOCARDIAL INFARCTION [None]
